FAERS Safety Report 7679669-4 (Version None)
Quarter: 2011Q3

REPORT INFORMATION
  Report Type: 
  Country: None (occurrence: None)
  Receive Date: 20110812
  Receipt Date: 20110808
  Transmission Date: 20111222
  Serious: Yes (Death, Other)
  Sender: FDA-Public Use
  Company Number: GB-B.I. PHARMACEUTICALS,INC./RIDGEFIELD-2011-UK-00858UK

PATIENT
  Age: 72 Year
  Sex: Female

DRUGS (11)
  1. PREDNITHOLONE [Concomitant]
  2. ISOFORBIDE MONONITRATE 10 [Concomitant]
  3. ASPIRIN [Concomitant]
  4. CLOPIDOGREL [Concomitant]
  5. SPIRIVA RESPIMAT [Suspect]
     Dates: start: 20110601
  6. ALBUTEROL [Concomitant]
  7. SERETIDE ENVOHALER [Concomitant]
  8. SIMVOSTATIN [Concomitant]
  9. OXYGEN [Concomitant]
     Indication: DYSPNOEA
  10. FLUZINAMIDE [Concomitant]
  11. RANITIDINE [Concomitant]

REACTIONS (2)
  - DEATH [None]
  - LOWER RESPIRATORY TRACT INFECTION [None]
